FAERS Safety Report 9193135 (Version 1)
Quarter: 2013Q1

REPORT INFORMATION
  Report Type: Spontaneous
  Country: US (occurrence: US)
  Receive Date: 20130327
  Receipt Date: 20130327
  Transmission Date: 20140127
  Serious: No
  Sender: FDA-Public Use
  Company Number: US-PFIZER INC-2013096064

PATIENT
  Age: 69 Year
  Sex: Female
  Weight: 81.63 kg

DRUGS (2)
  1. SPIRONOLACTONE [Suspect]
     Indication: FLUID RETENTION
     Dosage: 12.5 MG, DAILY
     Dates: start: 201208, end: 20130320
  2. TRIAMTERENE [Suspect]
     Indication: FLUID RETENTION
     Dosage: UNK, 1X/DAY
     Dates: start: 2012

REACTIONS (2)
  - Product quality issue [Unknown]
  - Urticaria [Not Recovered/Not Resolved]
